FAERS Safety Report 5518931-8 (Version None)
Quarter: 2007Q4

REPORT INFORMATION
  Report Type: 
  Country: None (occurrence: None)
  Receive Date: 20071114
  Receipt Date: 20071114
  Transmission Date: 20080405
  Serious: No
  Sender: FDA-Public Use
  Company Number: None

PATIENT
  Age: 51 Year
  Sex: Male
  Weight: 83.9154 kg

DRUGS (1)
  1. ZICAM    MATRIXX CORP. [Suspect]
     Indication: NASOPHARYNGITIS
     Dosage: INHAL
     Route: 055
     Dates: start: 20070228, end: 20070302

REACTIONS (5)
  - AGEUSIA [None]
  - ANOSMIA [None]
  - BURNING SENSATION [None]
  - NASAL DISCOMFORT [None]
  - SINUS DISORDER [None]
